FAERS Safety Report 25999589 (Version 1)
Quarter: 2025Q4

REPORT INFORMATION
  Report Type: Spontaneous
  Country: US (occurrence: US)
  Receive Date: 20251105
  Receipt Date: 20251105
  Transmission Date: 20260117
  Serious: No
  Sender: Tarsus Pharmaceuticals
  Company Number: US-TARSUS PHARMACEUTICALS-TSP-US-2025-001046

PATIENT

DRUGS (2)
  1. XDEMVY [Suspect]
     Active Substance: LOTILANER
     Indication: Dry eye
     Dosage: 1 DROP, BID (UTILIZING 1 DROP IN EACH EYE TWICE A DAY)
     Route: 047
     Dates: start: 202508
  2. LATANOPROST [Concomitant]
     Active Substance: LATANOPROST
     Indication: Intraocular pressure test
     Dosage: UNK
     Route: 065

REACTIONS (3)
  - Lacrimation increased [Unknown]
  - Product prescribing issue [Unknown]
  - Off label use [Unknown]
